FAERS Safety Report 11116506 (Version 3)
Quarter: 2015Q2

REPORT INFORMATION
  Report Type: Spontaneous
  Country: US (occurrence: US)
  Receive Date: 20150515
  Receipt Date: 20150626
  Transmission Date: 20150821
  Serious: No
  Sender: FDA-Public Use
  Company Number: US-ELI_LILLY_AND_COMPANY-US201504009892

PATIENT
  Age: 63 Year
  Sex: Male
  Weight: 90 kg

DRUGS (10)
  1. LYRICA [Concomitant]
     Active Substance: PREGABALIN
     Indication: NEUROPATHY PERIPHERAL
     Dosage: 400 MG, QD
  2. OXYCODONE [Concomitant]
     Active Substance: OXYCODONE
  3. DILAUDID [Concomitant]
     Active Substance: HYDROMORPHONE HYDROCHLORIDE
     Dosage: UNK, QD
  4. ROBAXIN [Concomitant]
     Active Substance: METHOCARBAMOL
  5. OXYCONTIN [Concomitant]
     Active Substance: OXYCODONE HYDROCHLORIDE
  6. HYDROMORPHONE [Concomitant]
     Active Substance: HYDROMORPHONE
     Indication: HEADACHE
  7. FORTEO [Suspect]
     Active Substance: TERIPARATIDE
     Indication: OSTEOPOROSIS
     Dosage: UNK, QD
     Route: 065
     Dates: start: 201503
  8. LYRICA [Concomitant]
     Active Substance: PREGABALIN
     Indication: ARTHRALGIA
  9. DILAUDID [Concomitant]
     Active Substance: HYDROMORPHONE HYDROCHLORIDE
     Dosage: UNK, BID
  10. HYDROMORPHONE [Concomitant]
     Active Substance: HYDROMORPHONE
     Indication: ARTHRALGIA

REACTIONS (11)
  - Product taste abnormal [Unknown]
  - Hiccups [Unknown]
  - Product odour abnormal [Unknown]
  - Arthralgia [Not Recovered/Not Resolved]
  - Bone pain [Unknown]
  - Musculoskeletal pain [Unknown]
  - Procedural pain [Not Recovered/Not Resolved]
  - Neck pain [Unknown]
  - Headache [Unknown]
  - Increased appetite [Not Recovered/Not Resolved]
  - Injection site pain [Unknown]

NARRATIVE: CASE EVENT DATE: 201505
